FAERS Safety Report 17703529 (Version 3)
Quarter: 2021Q1

REPORT INFORMATION
  Report Type: Other
  Country: DE (occurrence: DE)
  Receive Date: 20200424
  Receipt Date: 20210209
  Transmission Date: 20210419
  Serious: Yes (Other)
  Sender: FDA-Public Use
  Company Number: DE-CELLTRION INC.-2020DE021796

PATIENT

DRUGS (14)
  1. LONQUEX [Suspect]
     Active Substance: LIPEGFILGRASTIM
     Indication: BREAST CANCER
     Dosage: 6 MG, EVERY 0.33 WEEKS
     Route: 058
     Dates: start: 20200123
  2. OCREVUS [Suspect]
     Active Substance: OCRELIZUMAB
     Dosage: 600 MG, EVERY 0.16 MONTH; RECEIVED THE MOST RECENT DOSE ON 24/APR/2019
     Route: 042
     Dates: start: 20180326
  3. TRASTUZUMAB (UNKNOWN) [Suspect]
     Active Substance: TRASTUZUMAB
     Indication: BREAST CANCER
     Dosage: 636 MG, EVERY 0.33 WEEKS
     Route: 041
     Dates: start: 20200123
  4. TRASTUZUMAB (UNKNOWN) [Suspect]
     Active Substance: TRASTUZUMAB
     Dosage: 636 MG, EVERY 3 WEEKS
     Route: 041
     Dates: start: 20200123
  5. HERZUMA [Suspect]
     Active Substance: TRASTUZUMAB-PKRB
     Dosage: 420 MG, EVERY 3 WEEKS
     Route: 042
     Dates: start: 20200123
  6. DOCETAXEL. [Suspect]
     Active Substance: DOCETAXEL
     Indication: BREAST CANCER
     Dosage: 160 MG, EVERY 0.33 WEEKS
     Route: 042
     Dates: start: 20200123
  7. BONVIVA [Suspect]
     Active Substance: IBANDRONATE SODIUM
     Indication: BREAST CANCER
     Dosage: 6 MG, EVERY 3 WEEKS
     Route: 042
     Dates: start: 20200123
  8. BONDRONAT [IBANDRONATE SODIUM] [Suspect]
     Active Substance: IBANDRONATE SODIUM
     Indication: BREAST CANCER
     Dosage: UNK, EVERY 0.33 WEEKS
     Route: 042
     Dates: start: 20200123
  9. HERZUMA [Suspect]
     Active Substance: TRASTUZUMAB-PKRB
     Indication: BREAST CANCER
     Dosage: 420 MG, EVERY 0.33 WEEKS
     Route: 042
     Dates: start: 20200123
  10. DOCETAXEL. [Suspect]
     Active Substance: DOCETAXEL
     Dosage: 160 MG, EVERY 3 WEEKS
     Route: 042
     Dates: start: 20200123
  11. PERJETA [Suspect]
     Active Substance: PERTUZUMAB
     Dosage: 420 MG, EVERY 3 WEEKS
     Route: 042
     Dates: start: 20200123
  12. OCREVUS [Suspect]
     Active Substance: OCRELIZUMAB
     Indication: MULTIPLE SCLEROSIS
     Dosage: 600 MG, EVERY 6 MONTH; RECEIVED THE MOST RECENT DOSE ON 24/APR/2019
     Route: 042
     Dates: start: 20180326
  13. PERJETA [Suspect]
     Active Substance: PERTUZUMAB
     Indication: BREAST CANCER
     Dosage: 420 MG, EVERY 0.33 WEEKS
     Route: 042
     Dates: start: 20200123
  14. LONQUEX [Suspect]
     Active Substance: LIPEGFILGRASTIM
     Dosage: 6 MG, EVERY 3 WEEKS
     Route: 058
     Dates: start: 20200123

REACTIONS (4)
  - Rectal polyp [Recovered/Resolved]
  - Breast cancer [Not Recovered/Not Resolved]
  - Cardiac failure [Unknown]
  - Product use issue [Unknown]

NARRATIVE: CASE EVENT DATE: 20191219
